FAERS Safety Report 16172590 (Version 1)
Quarter: 2019Q2

REPORT INFORMATION
  Report Type: Spontaneous
  Country: US (occurrence: US)
  Receive Date: 20190409
  Receipt Date: 20190409
  Transmission Date: 20190711
  Serious: No
  Sender: FDA-Public Use
  Company Number: US-ASTRAZENECA-2019SE42137

PATIENT
  Sex: Male
  Weight: 86.6 kg

DRUGS (2)
  1. FARXIGA [Suspect]
     Active Substance: DAPAGLIFLOZIN PROPANEDIOL
     Indication: GLYCOSYLATED HAEMOGLOBIN
     Route: 048
     Dates: start: 20190305
  2. FARXIGA [Suspect]
     Active Substance: DAPAGLIFLOZIN PROPANEDIOL
     Indication: GLYCOSYLATED HAEMOGLOBIN
     Route: 048
     Dates: start: 201811, end: 20190304

REACTIONS (2)
  - Sinusitis [Recovered/Resolved]
  - Glycosylated haemoglobin increased [Unknown]
